FAERS Safety Report 18320790 (Version 3)
Quarter: 2022Q3

REPORT INFORMATION
  Report Type: Spontaneous
  Country: US (occurrence: US)
  Receive Date: 20200929
  Receipt Date: 20220915
  Transmission Date: 20221026
  Serious: Yes (Other)
  Sender: FDA-Public Use
  Company Number: US-SAARTEMIS-SAC202009220466

PATIENT
  Age: 59 Year
  Sex: Male

DRUGS (1)
  1. ZANTAC [Suspect]
     Active Substance: RANITIDINE HYDROCHLORIDE
     Indication: Gastrooesophageal reflux disease
     Dosage: 75 MG FREQ: OTHER
     Dates: start: 199501, end: 202001

REACTIONS (2)
  - Prostate cancer [Unknown]
  - Skin cancer [Unknown]

NARRATIVE: CASE EVENT DATE: 20180901
